FAERS Safety Report 23085657 (Version 5)
Quarter: 2023Q4

REPORT INFORMATION
  Report Type: Spontaneous
  Country: US (occurrence: US)
  Receive Date: 20231019
  Receipt Date: 20231128
  Transmission Date: 20240109
  Serious: No
  Sender: FDA-Public Use
  Company Number: US-PFIZER INC-PV202300170503

PATIENT
  Age: 57 Year
  Sex: Female

DRUGS (1)
  1. IBRANCE [Suspect]
     Active Substance: PALBOCICLIB
     Dosage: 125 MG

REACTIONS (5)
  - Nausea [Recovered/Resolved]
  - Dry mouth [Unknown]
  - Lip pain [Unknown]
  - Full blood count decreased [Not Recovered/Not Resolved]
  - Fatigue [Unknown]
